FAERS Safety Report 15411209 (Version 2)
Quarter: 2018Q4

REPORT INFORMATION
  Report Type: Spontaneous
  Country: US (occurrence: US)
  Receive Date: 20180921
  Receipt Date: 20181211
  Transmission Date: 20190204
  Serious: No
  Sender: FDA-Public Use
  Company Number: US-PFIZER INC-2018381573

PATIENT
  Age: 59 Year

DRUGS (1)
  1. LYRICA [Suspect]
     Active Substance: PREGABALIN
     Indication: SPINAL OSTEOARTHRITIS
     Dosage: 150 MG, 3X/DAY (1 (ONE) CAPSULE BY MOUTH THREE TIMES DAILY)
     Route: 048

REACTIONS (2)
  - Lumbar radiculopathy [Unknown]
  - Product use in unapproved indication [Unknown]
